FAERS Safety Report 6963103-3 (Version None)
Quarter: 2010Q3

REPORT INFORMATION
  Report Type: 
  Country: None (occurrence: None)
  Receive Date: 20100902
  Receipt Date: 20100823
  Transmission Date: 20110219
  Serious: Yes (Other)
  Sender: FDA-Public Use
  Company Number: US-PFIZER INC-2010106716

PATIENT
  Sex: Male

DRUGS (3)
  1. VIAGRA [Suspect]
     Dosage: UNK
     Route: 048
  2. ASPIRIN [Concomitant]
     Dosage: UNK
  3. PLAVIX [Concomitant]
     Dosage: UNK

REACTIONS (9)
  - BLINDNESS TRANSIENT [None]
  - C-REACTIVE PROTEIN ABNORMAL [None]
  - GLAUCOMA [None]
  - OPTIC ISCHAEMIC NEUROPATHY [None]
  - RETINAL ARTERY OCCLUSION [None]
  - RETINAL OEDEMA [None]
  - RETINAL VASCULAR DISORDER [None]
  - RETINITIS PIGMENTOSA [None]
  - TEMPORAL ARTERITIS [None]
